FAERS Safety Report 24448973 (Version 1)
Quarter: 2024Q4

REPORT INFORMATION
  Report Type: Spontaneous
  Country: PL (occurrence: PL)
  Receive Date: 20241017
  Receipt Date: 20241017
  Transmission Date: 20250115
  Serious: Yes (Other)
  Sender: AUROBINDO
  Company Number: PL-BRISTOL-MYERS SQUIBB COMPANY-2024-153422

PATIENT
  Age: 65 Year
  Sex: Female

DRUGS (6)
  1. PEMETREXED [Suspect]
     Active Substance: PEMETREXED
     Indication: Lung adenocarcinoma
     Dosage: UNK
  2. CISPLATIN [Suspect]
     Active Substance: CISPLATIN
     Indication: Lung adenocarcinoma
     Dosage: UNK
     Route: 065
  3. IPILIMUMAB [Suspect]
     Active Substance: IPILIMUMAB
     Indication: Lung adenocarcinoma
     Dosage: EVERY 6 WEEKS
     Route: 065
     Dates: start: 202306, end: 202402
  4. NIVOLUMAB [Suspect]
     Active Substance: NIVOLUMAB
     Indication: Lung adenocarcinoma
     Dosage: EVERY 3 WEEKS
     Route: 065
     Dates: start: 202306, end: 202402
  5. FOLIC ACID [Concomitant]
     Active Substance: FOLIC ACID
     Indication: Premedication
     Dosage: UNK
     Route: 065
  6. VITAMIN B12 [Concomitant]
     Active Substance: CYANOCOBALAMIN
     Indication: Premedication

REACTIONS (16)
  - Hypothyroidism [Recovering/Resolving]
  - Malignant neoplasm progression [Unknown]
  - Anaemia [Unknown]
  - Asthenia [Unknown]
  - Chest pain [Unknown]
  - Dyspnoea [Recovering/Resolving]
  - Headache [Unknown]
  - Leukocytosis [Unknown]
  - Infusion related hypersensitivity reaction [Recovered/Resolved]
  - Neutrophilia [Unknown]
  - Nausea [Unknown]
  - Productive cough [Unknown]
  - Pyrexia [Unknown]
  - Pleural effusion [Unknown]
  - Upper respiratory tract infection [Recovering/Resolving]
  - Vomiting [Recovered/Resolved]

NARRATIVE: CASE EVENT DATE: 20230101
